FAERS Safety Report 20696521 (Version 1)
Quarter: 2022Q2

REPORT INFORMATION
  Report Type: Other
  Country: US (occurrence: US)
  Receive Date: 20220411
  Receipt Date: 20220411
  Transmission Date: 20220721
  Serious: No
  Sender: FDA-Public Use
  Company Number: US-TRAVERE-2022TVT00092

PATIENT
  Age: 17 Year
  Sex: Female

DRUGS (1)
  1. CHOLIC ACID [Suspect]
     Active Substance: CHOLIC ACID
     Indication: Malabsorption
     Dosage: 250 MG / BID
     Route: 048
     Dates: start: 20211230

REACTIONS (2)
  - Stomatitis [Recovering/Resolving]
  - Oropharyngeal pain [Recovering/Resolving]
